FAERS Safety Report 9383799 (Version 1)
Quarter: 2013Q3

REPORT INFORMATION
  Report Type: Spontaneous
  Country: FR (occurrence: FR)
  Receive Date: 20130704
  Receipt Date: 20130704
  Transmission Date: 20140515
  Serious: Yes (Hospitalization, Other)
  Sender: FDA-Public Use
  Company Number: FR-BRISTOL-MYERS SQUIBB COMPANY-19050848

PATIENT
  Age: 74 Year
  Sex: Female

DRUGS (3)
  1. COUMADIN TABS 4 MG [Suspect]
     Indication: ATRIAL FIBRILLATION
     Route: 048
     Dates: start: 20130524, end: 20130526
  2. KARDEGIC [Suspect]
     Route: 048
     Dates: start: 20130523, end: 20130526
  3. CALCIPARINE [Suspect]
     Dates: end: 20130525

REACTIONS (4)
  - Lower gastrointestinal haemorrhage [Recovering/Resolving]
  - Overdose [Unknown]
  - Gastric ulcer [Unknown]
  - Atrial fibrillation [Unknown]
